FAERS Safety Report 21475997 (Version 1)
Quarter: 2022Q4

REPORT INFORMATION
  Report Type: Spontaneous
  Country: US (occurrence: None)
  Receive Date: 20221019
  Receipt Date: 20221019
  Transmission Date: 20230112
  Serious: Yes (Hospitalization, Other)
  Sender: FDA-Public Use
  Company Number: US-Unichem Pharmaceuticals (USA) Inc-UCM202210-001066

PATIENT
  Age: 40 Year
  Sex: Female

DRUGS (1)
  1. CYCLOBENZAPRINE HYDROCHLORIDE [Suspect]
     Active Substance: CYCLOBENZAPRINE HYDROCHLORIDE
     Indication: Suicide attempt
     Dosage: 42 TABLETS OF 10MG

REACTIONS (3)
  - Rhabdomyolysis [Recovered/Resolved]
  - Suicide attempt [Unknown]
  - Overdose [Unknown]
